FAERS Safety Report 8239634-5 (Version None)
Quarter: 2012Q1

REPORT INFORMATION
  Report Type: 
  Country: None (occurrence: None)
  Receive Date: 20120328
  Receipt Date: 20120319
  Transmission Date: 20120608
  Serious: Yes (Hospitalization)
  Sender: FDA-Public Use
  Company Number: PL-BAYER-2012-026325

PATIENT
  Age: 46 Year
  Sex: Female
  Weight: 60 kg

DRUGS (2)
  1. CALCIUM CARBONATE [Concomitant]
     Route: 048
  2. MIRENA [Suspect]
     Dosage: 20 MCG/24HR, CONT
     Route: 015
     Dates: start: 20111011, end: 20120215

REACTIONS (5)
  - PRURITUS [None]
  - HYPERSENSITIVITY [None]
  - WOUND SECRETION [None]
  - ERYTHEMA [None]
  - TACHYCARDIA [None]
